FAERS Safety Report 5702679-0 (Version None)
Quarter: 2008Q2

REPORT INFORMATION
  Report Type: 
  Country: None (occurrence: None)
  Receive Date: 20080411
  Receipt Date: 20080404
  Transmission Date: 20081010
  Serious: Yes (Hospitalization)
  Sender: FDA-Public Use
  Company Number: JP-BRISTOL-MYERS SQUIBB COMPANY-14096572

PATIENT
  Age: 25 Year
  Sex: Female

DRUGS (4)
  1. GATIFLO TABS [Suspect]
     Indication: PYELONEPHRITIS
     Dosage: GATIFLO 200MG TABS
     Route: 048
     Dates: start: 20080214, end: 20080216
  2. LOXONIN [Concomitant]
     Route: 048
     Dates: start: 20080214, end: 20080216
  3. SELBEX [Concomitant]
     Route: 048
     Dates: start: 20080214, end: 20080216
  4. CEFAMEZIN [Concomitant]
     Route: 042
     Dates: start: 20080214, end: 20080214

REACTIONS (1)
  - HEPATIC FUNCTION ABNORMAL [None]
